FAERS Safety Report 8104526-9 (Version None)
Quarter: 2012Q1

REPORT INFORMATION
  Report Type: 
  Country: None (occurrence: None)
  Receive Date: 20120201
  Receipt Date: 20120126
  Transmission Date: 20120608
  Serious: Yes (Hospitalization)
  Sender: FDA-Public Use
  Company Number: US-ALEXION PHARMACEUTICALS INC.-A201200012

PATIENT
  Sex: Male

DRUGS (19)
  1. LASIX [Concomitant]
     Indication: DIURETIC THERAPY
     Dosage: 40 MG, QD
     Route: 048
  2. MS CONTIN [Concomitant]
     Indication: BACK PAIN
     Dosage: 30 MG, BID
     Route: 048
  3. EFFEXOR [Concomitant]
     Indication: DEPRESSION
     Dosage: 225 MG, QD
     Route: 048
  4. RESTORIL [Concomitant]
     Indication: INSOMNIA
     Dosage: 15 MG, QD
     Route: 048
  5. VALIUM [Concomitant]
     Indication: POST-TRAUMATIC STRESS DISORDER
     Dosage: 5 MG, BID PRN
     Route: 048
  6. PROTONIX [Concomitant]
     Indication: PROPHYLAXIS
     Dosage: 80 MG, QD
     Route: 048
  7. ATIVAN [Concomitant]
     Indication: POST-TRAUMATIC STRESS DISORDER
     Dosage: 1 MG, QD
     Route: 048
  8. EXJADE [Concomitant]
     Indication: IRON OVERLOAD
     Dosage: 375 MG, QD
  9. SOLIRIS [Suspect]
     Dosage: 900 MG, Q2W
     Route: 042
     Dates: start: 20050101, end: 20060101
  10. SOLIRIS [Suspect]
     Dosage: 900 MG, Q12DAYS
     Dates: start: 20060101
  11. LYRICA [Concomitant]
     Indication: NERVE INJURY
     Dosage: 100 MG, TID
     Route: 048
  12. ASPIRIN [Concomitant]
     Indication: ANTICOAGULANT THERAPY
     Dosage: 81 MG, QD
     Route: 048
  13. ZANAFLEX [Concomitant]
     Indication: MUSCLE RELAXANT THERAPY
     Dosage: 4 MG, QD
     Route: 048
  14. ANDRODERM [Concomitant]
     Indication: BLOOD TESTOSTERONE DECREASED
     Dosage: 5 MG, UNK
     Route: 062
  15. PREDNISONE TAB [Concomitant]
     Indication: PAROXYSMAL NOCTURNAL HAEMOGLOBINURIA
     Dosage: 2 MG, QD
     Route: 048
  16. ADVAIR DISKUS 100/50 [Concomitant]
     Indication: ASTHMA
     Dosage: 500/50, BID
  17. FRAGMIN [Concomitant]
     Indication: ANTICOAGULANT THERAPY
     Dosage: 18000 U, QD
  18. SOLIRIS [Suspect]
     Indication: PAROXYSMAL NOCTURNAL HAEMOGLOBINURIA
     Dosage: 600 MG, QW
     Route: 042
     Dates: start: 20050901, end: 20050101
  19. NORCO [Concomitant]
     Dosage: 7.5/325 Q6HR

REACTIONS (6)
  - HEPATIC ENZYME INCREASED [None]
  - HAEMATOCRIT DECREASED [None]
  - HAEMOGLOBIN DECREASED [None]
  - NEUTROPENIA [None]
  - PNEUMONIA [None]
  - ASTHMA [None]
